FAERS Safety Report 6841221-8 (Version None)
Quarter: 2010Q3

REPORT INFORMATION
  Report Type: 
  Country: None (occurrence: None)
  Receive Date: 20100714
  Receipt Date: 20070629
  Transmission Date: 20110219
  Serious: No
  Sender: FDA-Public Use
  Company Number: US-PFIZER INC-2007055160

PATIENT
  Sex: Female
  Weight: 60 kg

DRUGS (14)
  1. CHANTIX [Suspect]
     Indication: SMOKING CESSATION THERAPY
     Route: 048
     Dates: start: 20070607
  2. LOMOTIL [Concomitant]
  3. BENTYL [Concomitant]
  4. SULFASALAZINE [Concomitant]
  5. PAROXETINE [Concomitant]
  6. METHOTREXATE [Concomitant]
  7. ETANERCEPT [Concomitant]
  8. FOLIC ACID [Concomitant]
  9. ATARAX [Concomitant]
  10. PREVACID [Concomitant]
  11. FOSAMAX [Concomitant]
  12. PREDNISOLONE [Concomitant]
  13. ALL OTHER THERAPEUTIC PRODUCTS [Concomitant]
  14. IBUPROFEN [Concomitant]

REACTIONS (4)
  - INSOMNIA [None]
  - NAUSEA [None]
  - NIGHTMARE [None]
  - VOMITING [None]
